FAERS Safety Report 10012896 (Version 1)
Quarter: 2014Q1

REPORT INFORMATION
  Report Type: Report from Study
  Country: JP (occurrence: JP)
  Receive Date: 20140314
  Receipt Date: 20140314
  Transmission Date: 20141002
  Serious: Yes (Hospitalization)
  Sender: FDA-Public Use
  Company Number: JP-TAKEDA-2014TJP003788

PATIENT
  Age: 65 Year
  Sex: Female
  Weight: 71 kg

DRUGS (12)
  1. PIOGLITAZONE [Suspect]
     Indication: TYPE 2 DIABETES MELLITUS
     Dosage: 15 MG, 1 DAYS
     Route: 048
     Dates: start: 20120929
  2. BLOPRESS TABLETS 4 [Concomitant]
     Dosage: UNK
     Route: 048
  3. HUMALOG [Concomitant]
     Indication: TYPE 2 DIABETES MELLITUS
     Dosage: 46 UT, TID
     Route: 050
     Dates: end: 20120928
  4. HUMALOG [Concomitant]
     Dosage: 44 UT, TID
     Route: 050
     Dates: start: 20120929, end: 20121128
  5. HUMALOG [Concomitant]
     Dosage: 14 UT, TID
     Route: 050
     Dates: start: 20121129, end: 20130427
  6. HUMALOG [Concomitant]
     Dosage: 28 UT, TID
     Route: 050
     Dates: start: 20130428
  7. LANTUS [Concomitant]
     Indication: TYPE 2 DIABETES MELLITUS
     Dosage: 10 UT, QD
     Route: 050
     Dates: end: 20130531
  8. LANTUS [Concomitant]
     Dosage: 12 IU, QD
     Route: 042
     Dates: start: 20130601
  9. METGLUCO [Concomitant]
     Indication: TYPE 2 DIABETES MELLITUS
     Dosage: 750 MG, 1 DAYS
     Route: 048
     Dates: start: 20130930
  10. DIART [Concomitant]
     Dosage: UNK
     Route: 048
  11. LIPITOR [Concomitant]
     Dosage: UNK
     Route: 048
  12. AMLODIPINE  OD                        /00972402/ [Concomitant]
     Dosage: UNK
     Route: 048

REACTIONS (2)
  - Foot fracture [Recovered/Resolved]
  - Fall [Recovered/Resolved]
